FAERS Safety Report 15415527 (Version 2)
Quarter: 2018Q3

REPORT INFORMATION
  Report Type: Report from Study
  Country: None (occurrence: BR)
  Receive Date: 20180922
  Receipt Date: 20180925
  Transmission Date: 20181010
  Serious: Yes (Hospitalization)
  Sender: FDA-Public Use
  Company Number: BR-ABBVIE-18K-020-2490672-00

PATIENT
  Age: 54 Year
  Sex: Female
  Weight: 62 kg

DRUGS (9)
  1. ATENOLOL. [Concomitant]
     Active Substance: ATENOLOL
     Indication: HYPERTENSION
  2. HYDROCHLOROTHIAZIDE. [Concomitant]
     Active Substance: HYDROCHLOROTHIAZIDE
     Indication: HYPERTENSION
  3. ENDOFOLIN [Concomitant]
     Active Substance: FOLIC ACID
     Indication: PSORIASIS
  4. BUSCOPAN [Concomitant]
     Active Substance: BUTYLSCOPOLAMINE BROMIDE
     Indication: CHOLELITHIASIS
  5. GLIFAGE [Concomitant]
     Active Substance: METFORMIN HYDROCHLORIDE
     Indication: DIABETES MELLITUS
  6. ARADOIS [Concomitant]
     Active Substance: LOSARTAN POTASSIUM
     Indication: HYPERTENSION
  7. BELLY [Concomitant]
     Indication: ANXIETY
  8. HUMIRA [Suspect]
     Active Substance: ADALIMUMAB
     Indication: PSORIATIC ARTHROPATHY
     Route: 058
     Dates: start: 20180328, end: 2018
  9. METHOTREXATE. [Concomitant]
     Active Substance: METHOTREXATE
     Indication: PSORIASIS

REACTIONS (8)
  - Abdominal pain [Recovering/Resolving]
  - Cholelithiasis [Unknown]
  - Arthralgia [Recovering/Resolving]
  - Abdominal distension [Recovering/Resolving]
  - Weight decreased [Recovered/Resolved]
  - Memory impairment [Unknown]
  - Influenza [Recovered/Resolved]
  - Pain in extremity [Recovering/Resolving]

NARRATIVE: CASE EVENT DATE: 2018
